FAERS Safety Report 21325963 (Version 1)
Quarter: 2022Q3

REPORT INFORMATION
  Report Type: Spontaneous
  Country: US (occurrence: US)
  Receive Date: 20220913
  Receipt Date: 20220913
  Transmission Date: 20221027
  Serious: No
  Sender: FDA-Public Use
  Company Number: US-ELI_LILLY_AND_COMPANY-US202208008434

PATIENT
  Age: 68 Year
  Sex: Female

DRUGS (2)
  1. MOUNJARO [Suspect]
     Active Substance: TIRZEPATIDE
     Indication: Weight increased
     Dosage: 2.5 MG, UNKNOWN
     Route: 058
     Dates: start: 202207
  2. MOUNJARO [Suspect]
     Active Substance: TIRZEPATIDE
     Indication: Weight increased
     Dosage: 7.5 MG, UNKNOWN
     Route: 058
     Dates: start: 20220808

REACTIONS (4)
  - Illness [Recovered/Resolved]
  - Nausea [Recovering/Resolving]
  - Incorrect product formulation administered [Unknown]
  - Off label use [Unknown]

NARRATIVE: CASE EVENT DATE: 20220701
